FAERS Safety Report 17970299 (Version 5)
Quarter: 2020Q3

REPORT INFORMATION
  Report Type: Report from Study
  Country: None (occurrence: GB)
  Receive Date: 20200702
  Receipt Date: 20200918
  Transmission Date: 20201103
  Serious: Yes (Other)
  Sender: FDA-Public Use
  Company Number: GB-ABBVIE-20K-167-3464692-00

PATIENT
  Age: 49 Year
  Sex: Female

DRUGS (7)
  1. VIRAMUNE [Suspect]
     Active Substance: NEVIRAPINE
     Indication: HIV INFECTION
     Dosage: 400 MG, QD
     Route: 065
     Dates: start: 20000122
  2. RITONAVIR. [Suspect]
     Active Substance: RITONAVIR
     Indication: HIV INFECTION
     Dosage: 500 MILLIGRAM, QD
     Route: 048
     Dates: start: 20000122
  3. NEVIRAPINE. [Suspect]
     Active Substance: NEVIRAPINE
     Indication: HIV INFECTION
     Dosage: FIRST COURSE; 400 MILLIGRAM, QD
     Route: 065
     Dates: start: 20000122
  4. DIDANOSINE. [Suspect]
     Active Substance: DIDANOSINE
     Indication: HIV INFECTION
     Dosage: FIRST COURSE; 400 MILLIGRAM, QD
     Route: 065
     Dates: start: 20040122
  5. SEBIVO [Suspect]
     Active Substance: TELBIVUDINE
     Indication: PRODUCT USED FOR UNKNOWN INDICATION
     Dosage: UNK
     Route: 065
  6. RETROVIR [Suspect]
     Active Substance: ZIDOVUDINE
     Indication: HIV INFECTION
     Dosage: 250 MG (500MG, QD), FREQUENCY OF PRODUCT : 2D
     Route: 065
     Dates: start: 20000122
  7. NORVIR [Suspect]
     Active Substance: RITONAVIR
     Indication: HIV INFECTION
     Dosage: FIRST COURSE; 500 MILLIGRAM, QD
     Route: 048
     Dates: start: 20000122

REACTIONS (2)
  - Maternal exposure during pregnancy [Unknown]
  - Stillbirth [Unknown]

NARRATIVE: CASE EVENT DATE: 20200629
